FAERS Safety Report 25993572 (Version 2)
Quarter: 2025Q4

REPORT INFORMATION
  Report Type: Spontaneous
  Country: US (occurrence: US)
  Receive Date: 20251104
  Receipt Date: 20251105
  Transmission Date: 20260117
  Serious: No
  Sender: BIOGEN
  Company Number: US-BIOGEN-2088716

PATIENT
  Age: 44 Year
  Sex: Female

DRUGS (1)
  1. PLEGRIDY [Suspect]
     Active Substance: PEGINTERFERON BETA-1A
     Indication: Multiple sclerosis

REACTIONS (7)
  - Multiple sclerosis relapse [Unknown]
  - Drug delivery system malfunction [Unknown]
  - Influenza [Unknown]
  - Injection site pain [Unknown]
  - Injection site erythema [Unknown]
  - Sinusitis [Unknown]
  - Depression [Unknown]

NARRATIVE: CASE EVENT DATE: 20240101
